FAERS Safety Report 4640418-5 (Version None)
Quarter: 2005Q2

REPORT INFORMATION
  Report Type: 
  Country: None (occurrence: None)
  Receive Date: 20050419
  Receipt Date: 20050407
  Transmission Date: 20051028
  Serious: Yes (Hospitalization)
  Sender: FDA-Public Use
  Company Number: 2005056952

PATIENT
  Age: 73 Year
  Sex: Female
  Weight: 67.1324 kg

DRUGS (3)
  1. BEXTRA [Suspect]
     Indication: ABASIA
     Dosage: 20 MG (20 MG, 1 IN 1 D), ORAL
     Route: 048
     Dates: start: 20041101, end: 20041101
  2. PROPACET 100 [Concomitant]
  3. MUSCLE RELAXANTS (MUSCLE RELAXANTS) [Concomitant]

REACTIONS (3)
  - BACK DISORDER [None]
  - LIMB DISCOMFORT [None]
  - NAUSEA [None]
